FAERS Safety Report 7393263-4 (Version None)
Quarter: 2011Q2

REPORT INFORMATION
  Report Type: 
  Country: None (occurrence: None)
  Receive Date: 20110405
  Receipt Date: 20110325
  Transmission Date: 20111010
  Serious: Yes (Hospitalization, Other)
  Sender: FDA-Public Use
  Company Number: US-BIOGENIDEC-2011BI011817

PATIENT
  Age: 48 Year
  Sex: Male

DRUGS (2)
  1. TYSABRI [Suspect]
     Indication: MULTIPLE SCLEROSIS
     Route: 042
     Dates: start: 20080424, end: 20091017
  2. TYSABRI [Suspect]
     Route: 042
     Dates: start: 20110106

REACTIONS (7)
  - MULTIPLE SCLEROSIS RELAPSE [None]
  - EYE INJURY [None]
  - PERIORBITAL HAEMATOMA [None]
  - TREMOR [None]
  - TRANSIENT ISCHAEMIC ATTACK [None]
  - FALL [None]
  - LACERATION [None]
